FAERS Safety Report 9551709 (Version 4)
Quarter: 2013Q4

REPORT INFORMATION
  Report Type: Report from Study
  Country: CA (occurrence: CA)
  Receive Date: 20130925
  Receipt Date: 20131209
  Transmission Date: 20140711
  Serious: Yes (Hospitalization, Other)
  Sender: FDA-Public Use
  Company Number: CA-ROCHE-1276772

PATIENT
  Age: 69 Year
  Sex: Female

DRUGS (6)
  1. RITUXAN [Suspect]
     Indication: ACQUIRED HAEMOPHILIA
     Route: 042
     Dates: start: 201110
  2. RITUXAN [Suspect]
     Route: 042
     Dates: start: 20111103
  3. DILAUDID [Suspect]
     Indication: PRODUCT USED FOR UNKNOWN INDICATION
     Route: 065
  4. PREDNISONE [Suspect]
     Indication: PRODUCT USED FOR UNKNOWN INDICATION
     Route: 065
     Dates: start: 20130910
  5. DIGOXIN [Concomitant]
  6. LASIKAL [Concomitant]

REACTIONS (9)
  - Sepsis [Unknown]
  - Knee arthroplasty [Unknown]
  - Activated partial thromboplastin time prolonged [Not Recovered/Not Resolved]
  - Coagulation factor VIII level decreased [Unknown]
  - Weight decreased [Unknown]
  - Contrast media allergy [Not Recovered/Not Resolved]
  - Drug hypersensitivity [Unknown]
  - Poor quality sleep [Not Recovered/Not Resolved]
  - Fatigue [Not Recovered/Not Resolved]
